FAERS Safety Report 9297362 (Version 2)
Quarter: 2013Q3

REPORT INFORMATION
  Report Type: Spontaneous
  Country: CA (occurrence: CA)
  Receive Date: 20130520
  Receipt Date: 20130801
  Transmission Date: 20140515
  Serious: Yes (Other)
  Sender: FDA-Public Use
  Company Number: CA-ABBOTT-13X-028-1090487-00

PATIENT
  Age: 36 Year
  Sex: Female

DRUGS (3)
  1. EPIVAL [Suspect]
     Indication: PRODUCT USED FOR UNKNOWN INDICATION
     Route: 048
  2. GILENYA [Suspect]
     Indication: RELAPSING-REMITTING MULTIPLE SCLEROSIS
     Route: 048
     Dates: start: 20110818, end: 20120423
  3. GILENYA [Suspect]

REACTIONS (2)
  - Condition aggravated [Unknown]
  - Oedema peripheral [Unknown]
